FAERS Safety Report 4401904-6 (Version None)
Quarter: 2004Q3

REPORT INFORMATION
  Report Type: 
  Country: None (occurrence: None)
  Receive Date: 20040714
  Receipt Date: 20040629
  Transmission Date: 20050211
  Serious: Yes (Other)
  Sender: FDA-Public Use
  Company Number: USA040567560

PATIENT
  Age: 65 Year
  Sex: Female
  Weight: 145 kg

DRUGS (6)
  1. HUMALOG [Suspect]
     Dates: start: 20030701
  2. HUMULIN 70/30 [Suspect]
     Dates: start: 19980101, end: 20030701
  3. AVANDIA [Concomitant]
  4. REZULIN [Concomitant]
  5. PRECOSE [Concomitant]
  6. GLYBURIDE [Concomitant]

REACTIONS (5)
  - CATARACT [None]
  - EYE HAEMORRHAGE [None]
  - GLAUCOMA [None]
  - VISUAL ACUITY REDUCED [None]
  - WEIGHT INCREASED [None]
